FAERS Safety Report 7764492-2 (Version None)
Quarter: 2011Q3

REPORT INFORMATION
  Report Type: 
  Country: None (occurrence: None)
  Receive Date: 20110921
  Receipt Date: 20110908
  Transmission Date: 20111222
  Serious: Yes (Hospitalization, Other)
  Sender: FDA-Public Use
  Company Number: US-SANOFI-AVENTIS-2011SA060853

PATIENT
  Age: 58 Year
  Sex: Female

DRUGS (1)
  1. LANTUS [Suspect]
     Dosage: DOSE:10 UNIT(S)
     Route: 058

REACTIONS (3)
  - CARDIAC OPERATION [None]
  - RENAL FAILURE [None]
  - MALAISE [None]
